FAERS Safety Report 9378236 (Version 1)
Quarter: 2013Q3

REPORT INFORMATION
  Report Type: Report from Study
  Country: DE (occurrence: DE)
  Receive Date: 20130701
  Receipt Date: 20130701
  Transmission Date: 20140515
  Serious: Yes (Other)
  Sender: FDA-Public Use
  Company Number: DE-INCYTE CORPORATION-2013IN001356

PATIENT
  Age: 62 Year
  Sex: 0

DRUGS (1)
  1. JAKAVI [Suspect]
     Indication: MYELOFIBROSIS
     Dosage: BID
     Route: 065

REACTIONS (2)
  - Herpes zoster [Unknown]
  - Headache [Unknown]
